FAERS Safety Report 4837589-4 (Version None)
Quarter: 2005Q4

REPORT INFORMATION
  Report Type: 
  Country: None (occurrence: None)
  Receive Date: 20051024
  Receipt Date: 20050906
  Transmission Date: 20060501
  Serious: No
  Sender: FDA-Public Use
  Company Number: 217010

PATIENT
  Age: 26 Year
  Sex: Female
  Weight: 88.9 kg

DRUGS (7)
  1. XOLAIR [Suspect]
     Indication: ASTHMA
     Dosage: 225MG, Q2W; SUBCUTANEOUS
     Route: 058
     Dates: start: 20050101, end: 20050629
  2. ALBUTEROL (ALBUTEROL, ALBUTEROL SULFATE) [Concomitant]
  3. ADVAIR (SALMETEROL XINAFOATE, FLUTICASONE PROPIONATE) [Concomitant]
  4. ZYRTEC [Concomitant]
  5. CLARITIN [Concomitant]
  6. METFORMIN [Concomitant]
  7. SINGULAIR [Concomitant]

REACTIONS (2)
  - DEHYDRATION [None]
  - FATIGUE [None]
